FAERS Safety Report 9974748 (Version 1)
Quarter: 2014Q1

REPORT INFORMATION
  Report Type: Report from Study
  Country: US (occurrence: US)
  Receive Date: 20140306
  Receipt Date: 20140306
  Transmission Date: 20141002
  Serious: No
  Sender: FDA-Public Use
  Company Number: US-ABBVIE-13P-163-1157734-00

PATIENT
  Age: 47 Year
  Sex: Female

DRUGS (9)
  1. HUMIRA [Suspect]
     Indication: PSORIATIC ARTHROPATHY
     Dates: end: 201302
  2. METHOTREXATE [Concomitant]
     Indication: PSORIATIC ARTHROPATHY
  3. CALCIUM [Concomitant]
     Indication: PRODUCT USED FOR UNKNOWN INDICATION
     Dosage: DAILY
  4. DORIBAX [Concomitant]
     Indication: PSORIATIC ARTHROPATHY
  5. METFORMIN [Concomitant]
     Indication: DIABETES MELLITUS
  6. OMEPRAZOLE [Concomitant]
     Indication: DYSPEPSIA
     Dosage: 20 MG DAILY
  7. ZYRTEC [Concomitant]
     Indication: SEASONAL ALLERGY
     Dosage: DAILY
  8. VITAMIN C [Concomitant]
     Indication: PRODUCT USED FOR UNKNOWN INDICATION
     Dosage: DAILY
  9. ZINC [Concomitant]
     Indication: PRODUCT USED FOR UNKNOWN INDICATION
     Dosage: DAILY

REACTIONS (5)
  - Papule [Recovered/Resolved]
  - Muscle atrophy [Recovered/Resolved]
  - Skin ulcer [Recovered/Resolved]
  - Wound infection [Recovered/Resolved]
  - Impaired healing [Recovered/Resolved]
